FAERS Safety Report 19118481 (Version 1)
Quarter: 2021Q2

REPORT INFORMATION
  Report Type: Spontaneous
  Country: RU (occurrence: RU)
  Receive Date: 20210409
  Receipt Date: 20210409
  Transmission Date: 20210717
  Serious: Yes (Hospitalization, Other)
  Sender: FDA-Public Use
  Company Number: RU-009507513-2104RUS001638

PATIENT
  Age: 61 Year
  Sex: Female
  Weight: 57 kg

DRUGS (7)
  1. ZOFRAN [Suspect]
     Active Substance: ONDANSETRON HYDROCHLORIDE
     Indication: PLASMA CELL MYELOMA
     Dosage: 8 MG, QD
     Dates: start: 20171219, end: 20171220
  2. NEULASTA [Suspect]
     Active Substance: PEGFILGRASTIM
     Indication: PLASMA CELL MYELOMA
     Dosage: 6 MG, QD
     Route: 042
     Dates: start: 20171224, end: 20171224
  3. EMEND [Suspect]
     Active Substance: APREPITANT
     Indication: PLASMA CELL MYELOMA
     Dosage: 80 MG, QD
     Route: 042
     Dates: start: 20171220, end: 20171221
  4. ALKERAN [Suspect]
     Active Substance: MELPHALAN
     Indication: PLASMA CELL MYELOMA
     Dosage: 320 MG ONCE A DAY
     Route: 042
     Dates: start: 20171219, end: 20171219
  5. ZOMETA [Concomitant]
     Active Substance: ZOLEDRONIC ACID
  6. ZELITREX [Concomitant]
     Active Substance: VALACYCLOVIR HYDROCHLORIDE
  7. EMEND [Suspect]
     Active Substance: APREPITANT
     Indication: PLASMA CELL MYELOMA
     Dosage: 125 MG, QD
     Route: 042
     Dates: start: 20171219, end: 20171219

REACTIONS (6)
  - Retching [Recovered/Resolved]
  - Febrile bone marrow aplasia [Recovered/Resolved]
  - Nausea [Recovered/Resolved]
  - Mucosal inflammation [Recovered/Resolved]
  - Asthenia [Recovered/Resolved]
  - Frequent bowel movements [Recovered/Resolved]

NARRATIVE: CASE EVENT DATE: 20171222
